FAERS Safety Report 17158362 (Version 1)
Quarter: 2019Q4

REPORT INFORMATION
  Report Type: Spontaneous
  Country: VN (occurrence: VN)
  Receive Date: 20191216
  Receipt Date: 20191216
  Transmission Date: 20200122
  Serious: Yes (Other)
  Sender: FDA-Public Use
  Company Number: VN-BAYER-2019-220582

PATIENT
  Age: 46 Year
  Sex: Male

DRUGS (1)
  1. NEXAVAR [Suspect]
     Active Substance: SORAFENIB
     Indication: HEPATOCELLULAR CARCINOMA
     Dosage: 200 MG, BID
     Route: 048
     Dates: start: 20190910

REACTIONS (3)
  - Metastases to lung [None]
  - Hepatocellular carcinoma [None]
  - Off label use [None]

NARRATIVE: CASE EVENT DATE: 20190910
